FAERS Safety Report 9582629 (Version 1)
Quarter: 2013Q4

REPORT INFORMATION
  Report Type: Spontaneous
  Country: US (occurrence: US)
  Receive Date: 20131002
  Receipt Date: 20131002
  Transmission Date: 20140711
  Serious: No
  Sender: FDA-Public Use
  Company Number: US-AMGEN-USASP2013041772

PATIENT
  Age: 49 Year
  Sex: Female
  Weight: 104.31 kg

DRUGS (11)
  1. ENBREL [Suspect]
     Indication: PSORIATIC ARTHROPATHY
     Dosage: 50 MG, QWK
     Route: 058
  2. TRAZODONE [Concomitant]
     Dosage: 100 MG, UNK
  3. ATENOLOL [Concomitant]
     Dosage: 25 MG, UNK
  4. ALBUTEROL                          /00139501/ [Concomitant]
     Dosage: 90 MUG, UNK
  5. ADVAIR [Concomitant]
     Dosage: 100/50, UNK
  6. IMITREX                            /01044801/ [Concomitant]
     Dosage: 25 MG, UNK
  7. AMITRIPTYLIN [Concomitant]
     Dosage: 10 MG, UNK
  8. PROZAC [Concomitant]
     Dosage: 10 MG, UNK
  9. LOSARTAN POTASICO [Concomitant]
     Dosage: 100 MG, UNK
  10. ALEVE [Concomitant]
     Dosage: 220 MG, UNK
  11. GLUCO + CHONDROITIN [Concomitant]
     Dosage: UNK

REACTIONS (1)
  - Drug ineffective [Unknown]
